FAERS Safety Report 19288961 (Version 1)
Quarter: 2021Q2

REPORT INFORMATION
  Report Type: Spontaneous
  Country: DE (occurrence: DE)
  Receive Date: 20210522
  Receipt Date: 20210522
  Transmission Date: 20210717
  Serious: Yes (Other)
  Sender: FDA-Public Use
  Company Number: NVSC2021DE105935

PATIENT
  Age: 64 Year

DRUGS (9)
  1. OCTREOTIDE. [Suspect]
     Active Substance: OCTREOTIDE
     Indication: CARCINOID SYNDROME
     Dosage: 100 UG, Q8H
     Route: 058
     Dates: start: 201805
  2. EVEROLIMUS. [Suspect]
     Active Substance: EVEROLIMUS
     Indication: CARCINOID SYNDROME
     Dosage: 10 MG, QD
     Route: 065
     Dates: start: 201801
  3. XERAMEL [Suspect]
     Active Substance: ERYTHROMYCIN ESTOLATE
     Indication: CARCINOID SYNDROME
     Dosage: 250 MG, QD
     Route: 065
     Dates: start: 201801, end: 201804
  4. XERAMEL [Suspect]
     Active Substance: ERYTHROMYCIN ESTOLATE
     Dosage: 250 MG
     Route: 065
     Dates: start: 201805
  5. OCTREOTIDE. [Suspect]
     Active Substance: OCTREOTIDE
  6. OCTREOTIDE. [Suspect]
     Active Substance: OCTREOTIDE
  7. EVEROLIMUS. [Suspect]
     Active Substance: EVEROLIMUS
     Dosage: UNK
  8. OCTREOTIDE. [Suspect]
     Active Substance: OCTREOTIDE
     Indication: CARCINOID SYNDROME
     Dosage: 20 MG, Q4W
     Route: 030
     Dates: start: 201702
  9. SOMATULINE [Suspect]
     Active Substance: LANREOTIDE ACETATE
     Indication: CARCINOID SYNDROME
     Dosage: 120 MG, Q4W
     Route: 065
     Dates: start: 201805

REACTIONS (6)
  - Hyperthyroidism [Unknown]
  - Condition aggravated [Not Recovered/Not Resolved]
  - Liver abscess [Unknown]
  - Disease progression [Not Recovered/Not Resolved]
  - Streptococcal infection [Unknown]
  - Off label use [Unknown]

NARRATIVE: CASE EVENT DATE: 201801
